FAERS Safety Report 18979016 (Version 6)
Quarter: 2022Q3

REPORT INFORMATION
  Report Type: Other
  Country: RO (occurrence: None)
  Receive Date: 20210308
  Receipt Date: 20220728
  Transmission Date: 20221026
  Serious: Yes (Other)
  Sender: FDA-Public Use
  Company Number: RO-ROCHE-2776240

PATIENT
  Sex: Female
  Weight: 126 kg

DRUGS (4)
  1. ALECENSA [Suspect]
     Active Substance: ALECTINIB HYDROCHLORIDE
     Indication: Metastases to lung
     Dosage: 4 IN THE MORNING, AND 4 IN THE EVENING
     Route: 065
     Dates: start: 20201224
  2. URSODIOL [Concomitant]
     Active Substance: URSODIOL
  3. VITAMINS [Concomitant]
     Active Substance: VITAMINS
  4. ZINC [Concomitant]
     Active Substance: ZINC

REACTIONS (13)
  - Leukopenia [Unknown]
  - Thrombocytopenia [Unknown]
  - Constipation [Unknown]
  - Weight increased [Unknown]
  - Therapy cessation [Unknown]
  - Unevaluable event [Unknown]
  - Varicose vein [Unknown]
  - Weight increased [Unknown]
  - Off label use [Unknown]
  - Transaminases increased [Unknown]
  - Blood bilirubin increased [Unknown]
  - Liver disorder [Unknown]
  - Spleen disorder [Unknown]
